FAERS Safety Report 8838530 (Version 1)
Quarter: 2012Q4

REPORT INFORMATION
  Report Type: 
  Country: US (occurrence: US)
  Receive Date: 20121012
  Receipt Date: 20121012
  Transmission Date: 20130627
  Serious: Yes (Hospitalization, Disabling, Other)
  Sender: FDA-Public Use
  Company Number: US-ELI_LILLY_AND_COMPANY-US201210001055

PATIENT
  Sex: Female

DRUGS (3)
  1. HUMALOG LISPRO [Suspect]
     Indication: DIABETES MELLITUS
     Dosage: UNK UNK, unknown
     Dates: start: 1988
  2. LANTUS [Concomitant]
     Dosage: UNK, unknown
  3. ANTIHYPERTENSIVES [Concomitant]
     Dosage: UNK, unknown

REACTIONS (7)
  - Myocardial infarction [Unknown]
  - Cerebrovascular accident [Unknown]
  - Movement disorder [Not Recovered/Not Resolved]
  - Convulsion [Unknown]
  - Visual acuity reduced [Not Recovered/Not Resolved]
  - Aphasia [Not Recovered/Not Resolved]
  - Incorrect storage of drug [Not Recovered/Not Resolved]
